FAERS Safety Report 13958267 (Version 1)
Quarter: 2017Q3

REPORT INFORMATION
  Report Type: Spontaneous
  Country: US (occurrence: US)
  Receive Date: 20170911
  Receipt Date: 20170911
  Transmission Date: 20171128
  Serious: Yes (Hospitalization)
  Sender: FDA-Public Use
  Company Number: US-ROCHE-797511

PATIENT
  Age: 54 Year
  Sex: Female
  Weight: 56.24 kg

DRUGS (1)
  1. MABTHERA [Suspect]
     Active Substance: RITUXIMAB
     Indication: LYMPHOMA
     Dosage: 466 UNK, Q3W
     Route: 042
     Dates: start: 20110802, end: 20110802

REACTIONS (6)
  - Tumour lysis syndrome [Unknown]
  - Back pain [Unknown]
  - Abdominal pain [Unknown]
  - Blood potassium increased [Unknown]
  - Heart rate decreased [Unknown]
  - Renal pain [Recovered/Resolved]

NARRATIVE: CASE EVENT DATE: 20110802
